FAERS Safety Report 11801506 (Version 2)
Quarter: 2019Q3

REPORT INFORMATION
  Report Type: Spontaneous
  Country: DE (occurrence: DE)
  Receive Date: 20151204
  Receipt Date: 20190916
  Transmission Date: 20191004
  Serious: Yes (Congenital Anomaly)
  Sender: FDA-Public Use
  Company Number: DE-SUN PHARMACEUTICAL INDUSTRIES LTD-2015RR-107110

PATIENT
  Age: 1 Day
  Sex: Male
  Weight: 3.98 kg

DRUGS (4)
  1. BERODUAL N DOSIERAEROSOL [Concomitant]
     Dosage: 500 MILLIGRAM, DAILY
     Route: 064
     Dates: start: 20141011, end: 201507
  2. LEVETIRACETAM. [Suspect]
     Active Substance: LEVETIRACETAM
     Indication: EPILEPSY
     Dosage: 500 MG, BID
     Route: 064
     Dates: start: 20140927, end: 20150717
  3. NOVOPULMON 200 NOVOLIZER [Suspect]
     Active Substance: BUDESONIDE
     Indication: ASTHMA
     Dosage: 0.4 MG, BID
     Route: 064
     Dates: start: 20140927, end: 20150717
  4. BERODUAL N DOSIERAEROSOL [Concomitant]
     Indication: ASTHMA
     Dosage: 0.1/ 0.4 MG/DAY ON DEMAND
     Route: 064
     Dates: start: 20140927, end: 20150717

REACTIONS (3)
  - Congenital hydronephrosis [Not Recovered/Not Resolved]
  - Foetal exposure during pregnancy [Unknown]
  - Pancreatic cyst [Not Recovered/Not Resolved]

NARRATIVE: CASE EVENT DATE: 20141011
